FAERS Safety Report 6051804-3 (Version None)
Quarter: 2009Q1

REPORT INFORMATION
  Report Type: 
  Country: None (occurrence: None)
  Receive Date: 20090126
  Receipt Date: 20090114
  Transmission Date: 20090719
  Serious: Yes (Death, Other)
  Sender: FDA-Public Use
  Company Number: NO-PFIZER INC-2008100021

PATIENT
  Age: 41 Year
  Sex: Female

DRUGS (2)
  1. CYTOTEC [Suspect]
     Dosage: 25 UG, 3X/DAY
     Route: 067
     Dates: start: 20060828, end: 20060828
  2. TRANDATE [Concomitant]
     Dosage: UNK
     Route: 048
     Dates: start: 20060804, end: 20060828

REACTIONS (2)
  - CARDIAC FAILURE ACUTE [None]
  - DRUG INEFFECTIVE FOR UNAPPROVED INDICATION [None]
